FAERS Safety Report 20042212 (Version 1)
Quarter: 2021Q4

REPORT INFORMATION
  Report Type: Other
  Country: US (occurrence: None)
  Receive Date: 20211108
  Receipt Date: 20211108
  Transmission Date: 20220303
  Serious: Yes (Other)
  Sender: FDA-Public Use
  Company Number: US-ROCHE-2946517

PATIENT
  Sex: Female

DRUGS (2)
  1. XELODA [Suspect]
     Active Substance: CAPECITABINE
     Indication: Neoplasm malignant
     Dosage: TAKE 3 TABLET(S) BY MOUTH TWICE A DAY FOR 2 WEEK(S) ON, 1 WEEK(S) OFF , THEN REPEAT EVERY 21 DAY(S)
     Route: 048
  2. XELODA [Suspect]
     Active Substance: CAPECITABINE
     Indication: Cardiac failure congestive

REACTIONS (5)
  - Hepatic cirrhosis [Unknown]
  - Dysphagia [Unknown]
  - Fall [Unknown]
  - Gastrooesophageal reflux disease [Unknown]
  - Sensation of foreign body [Unknown]
